FAERS Safety Report 18559986 (Version 3)
Quarter: 2021Q1

REPORT INFORMATION
  Report Type: Report from Study
  Country: None (occurrence: US)
  Receive Date: 20201130
  Receipt Date: 20210222
  Transmission Date: 20210419
  Serious: Yes (Hospitalization)
  Sender: FDA-Public Use
  Company Number: US-ABBVIE-20K-163-3652341-00

PATIENT
  Age: 66 Year
  Sex: Male

DRUGS (2)
  1. HUMIRA [Suspect]
     Active Substance: ADALIMUMAB
     Indication: PSORIASIS
     Dosage: DAY 1
     Route: 058
     Dates: start: 20201110, end: 20201110
  2. HUMIRA [Suspect]
     Active Substance: ADALIMUMAB
     Dosage: DAY 8
     Route: 058
     Dates: start: 20201119

REACTIONS (12)
  - Chronic obstructive pulmonary disease [Unknown]
  - Smoke sensitivity [Unknown]
  - Respiratory distress [Unknown]
  - Sepsis [Unknown]
  - Quality of life decreased [Recovering/Resolving]
  - Malaise [Unknown]
  - Psoriasis [Recovered/Resolved]
  - Self-consciousness [Recovering/Resolving]
  - Injection site bruising [Unknown]
  - Injection site pain [Unknown]
  - Diarrhoea [Recovered/Resolved]
  - Injection site erythema [Unknown]

NARRATIVE: CASE EVENT DATE: 2020
